FAERS Safety Report 17258991 (Version 1)
Quarter: 2020Q1

REPORT INFORMATION
  Report Type: Spontaneous
  Country: DK (occurrence: DK)
  Receive Date: 20200110
  Receipt Date: 20200110
  Transmission Date: 20200409
  Serious: Yes (Death)
  Sender: FDA-Public Use
  Company Number: DK-MYLANLABS-2020M1004369

PATIENT
  Age: 76 Year
  Sex: Female

DRUGS (2)
  1. ATORVASTATIN [Concomitant]
     Active Substance: ATORVASTATIN
     Indication: HYPERCHOLESTEROLAEMIA
     Dosage: 40 MILLIGRAM, QD(STYRKE: 40 MG)
     Route: 048
     Dates: start: 20180115
  2. CLOPIDOGREL [Suspect]
     Active Substance: CLOPIDOGREL BISULFATE
     Indication: RETINAL ARTERY OCCLUSION
     Dosage: 75 MILLIGRAM, QD
     Route: 048
     Dates: start: 20141014

REACTIONS (2)
  - Hypovolaemic shock [Fatal]
  - Intra-abdominal haemorrhage [Fatal]

NARRATIVE: CASE EVENT DATE: 20191015
